FAERS Safety Report 5946972-5 (Version None)
Quarter: 2008Q4

REPORT INFORMATION
  Report Type: 
  Country: None (occurrence: None)
  Receive Date: 20081110
  Receipt Date: 20081104
  Transmission Date: 20090506
  Serious: Yes (Hospitalization, Other)
  Sender: FDA-Public Use
  Company Number: FR-AVENTIS-200813940FR

PATIENT
  Age: 50 Year
  Sex: Female

DRUGS (8)
  1. ARAVA [Suspect]
     Indication: RHEUMATOID ARTHRITIS
     Route: 048
     Dates: start: 20080124, end: 20080715
  2. EFFERALGAN                         /00020001/ [Concomitant]
     Route: 048
  3. AUGMENTIN '125' [Concomitant]
     Dates: start: 20080723, end: 20080730
  4. SURBRONC [Concomitant]
     Route: 048
     Dates: start: 20080723
  5. PYOSTACINE [Concomitant]
     Route: 048
     Dates: start: 20080731, end: 20080805
  6. ACTONEL [Concomitant]
     Route: 048
     Dates: start: 20080701
  7. CORTANCYL [Concomitant]
     Indication: RHEUMATOID ARTHRITIS
     Route: 048
     Dates: start: 20080701
  8. CACIT D3 [Concomitant]
     Route: 048
     Dates: start: 20080701

REACTIONS (4)
  - ALANINE AMINOTRANSFERASE INCREASED [None]
  - ASPARTATE AMINOTRANSFERASE INCREASED [None]
  - CYTOLYTIC HEPATITIS [None]
  - HEPATOCELLULAR INJURY [None]
